FAERS Safety Report 7186124-7 (Version None)
Quarter: 2010Q4

REPORT INFORMATION
  Report Type: 
  Country: None (occurrence: None)
  Receive Date: 20101222
  Receipt Date: 20101216
  Transmission Date: 20110411
  Serious: Yes (Death, Other)
  Sender: FDA-Public Use
  Company Number: GB-PFIZER INC-2010160565

PATIENT
  Age: 16 Month

DRUGS (1)
  1. IBUPROFEN [Suspect]
     Dosage: 469 MG/KG, UNK

REACTIONS (6)
  - APNOEA [None]
  - ASPIRATION [None]
  - CONVULSION [None]
  - OVERDOSE [None]
  - PNEUMONIA ASPIRATION [None]
  - SEPSIS [None]
